FAERS Safety Report 16171774 (Version 1)
Quarter: 2019Q2

REPORT INFORMATION
  Report Type: Spontaneous
  Country: CN (occurrence: CN)
  Receive Date: 20190408
  Receipt Date: 20190408
  Transmission Date: 20190711
  Serious: Yes (Other)
  Sender: FDA-Public Use
  Company Number: CN-BAXTER-2019BAX006833

PATIENT
  Age: 44 Year
  Sex: Female
  Weight: 69 kg

DRUGS (11)
  1. 0.9% SODIUM CHLORIDE INJECTION [Suspect]
     Active Substance: SODIUM CHLORIDE
     Dosage: 0.9%NS 500ML+RITUXIMAB 500MG IVGTT QD
     Route: 041
     Dates: start: 20190226, end: 20190226
  2. 5% GLUCOSE  INJECTION [Suspect]
     Active Substance: DEXTROSE
     Indication: MEDICATION DILUTION
     Dosage: 5%GS250ML+ DOXORUBICIN LIPOSOME
     Route: 041
     Dates: start: 20190227, end: 20190227
  3. PREDNISONE. [Suspect]
     Active Substance: PREDNISONE
     Indication: NON-HODGKIN^S LYMPHOMA
     Route: 048
     Dates: start: 20190227, end: 20190303
  4. 0.9% SODIUM CHLORIDE INJECTION [Suspect]
     Active Substance: SODIUM CHLORIDE
     Dosage: 0.9%NS 100ML+CYCLOPHOSPHAMIDE 1.3G IVGTT QD
     Route: 041
     Dates: start: 20190227, end: 20190227
  5. DOXORUBICIN HYDROCHLORIDE LIPOSOME [Suspect]
     Active Substance: DOXORUBICIN HYDROCHLORIDE
     Indication: NON-HODGKIN^S LYMPHOMA
     Dosage: 5%GS250ML+ DOXORUBICIN LIPOSOME
     Route: 041
     Dates: start: 20190227, end: 20190227
  6. RITUXIMAB. [Suspect]
     Active Substance: RITUXIMAB
     Dosage: 0.9%NS 500ML+RITUXIMAB 500MG IVGTT QD
     Route: 041
     Dates: start: 20190226, end: 20190226
  7. VINDESINE SULFATE [Suspect]
     Active Substance: VINDESINE SULFATE
     Indication: NON-HODGKIN^S LYMPHOMA
     Dosage: 0.9%NS50ML+VINDESINE 4MG IVGTT QD
     Route: 041
     Dates: start: 20190227, end: 20190227
  8. 0.9% SODIUM CHLORIDE INJECTION [Suspect]
     Active Substance: SODIUM CHLORIDE
     Dosage: 0.9%NS50ML+VINDESINE 4MG IVGTT QD
     Route: 041
     Dates: start: 20190227, end: 20190227
  9. RITUXIMAB. [Suspect]
     Active Substance: RITUXIMAB
     Indication: NON-HODGKIN^S LYMPHOMA
     Dosage: 0.9%NS 100ML+RITUXIMAB 100MG IVGTT QD,
     Route: 041
     Dates: start: 20190226, end: 20190226
  10. ENDOXAN [Suspect]
     Active Substance: CYCLOPHOSPHAMIDE
     Indication: NON-HODGKIN^S LYMPHOMA
     Dosage: 0.9%NS 100ML+CYCLOPHOSPHAMIDE 1.3G IVGTT QD
     Route: 041
     Dates: start: 20190227, end: 20190227
  11. 0.9% SODIUM CHLORIDE INJECTION [Suspect]
     Active Substance: SODIUM CHLORIDE
     Indication: MEDICATION DILUTION
     Dosage: 0.9%NS 100ML+RITUXIMAB 100MG IVGTT QD
     Route: 041
     Dates: start: 20190226, end: 20190226

REACTIONS (1)
  - Hepatic function abnormal [Recovering/Resolving]

NARRATIVE: CASE EVENT DATE: 20190318
